FAERS Safety Report 8607850 (Version 2)
Quarter: 2013Q2

REPORT INFORMATION
  Report Type: Spontaneous
  Country: US (occurrence: US)
  Receive Date: 20120611
  Receipt Date: 20130617
  Transmission Date: 20140414
  Serious: Yes (Hospitalization)
  Sender: FDA-Public Use
  Company Number: US-ASTRAZENECA-2012SE35034

PATIENT
  Age: 42 Year
  Sex: 0
  Weight: 112.5 kg

DRUGS (13)
  1. NEXIUM [Suspect]
     Indication: GASTROOESOPHAGEAL REFLUX DISEASE
     Route: 048
     Dates: start: 200906
  2. RANITIDINE [Concomitant]
     Indication: GASTROOESOPHAGEAL REFLUX DISEASE
  3. ZANTAC [Concomitant]
  4. PRAVASTATIN [Concomitant]
  5. AMLODPINE BESYLATE [Concomitant]
  6. LOSARTAN [Concomitant]
  7. GABAPENTIN [Concomitant]
  8. VENTOLIN [Concomitant]
  9. HALOPERIDOL [Concomitant]
  10. TRAZODONE [Concomitant]
  11. NORTHINDRONE [Concomitant]
  12. OXYBUTYNIN [Concomitant]
  13. LEVEMIR [Concomitant]

REACTIONS (8)
  - Osteoarthritis [Unknown]
  - Osteoporosis [Unknown]
  - Multiple fractures [Unknown]
  - Diabetes mellitus [Unknown]
  - Bone disorder [Unknown]
  - Bone pain [Unknown]
  - Arthritis [Unknown]
  - Sickle cell anaemia [Unknown]
